FAERS Safety Report 25930542 (Version 1)
Quarter: 2025Q4

REPORT INFORMATION
  Report Type: Spontaneous
  Country: CN (occurrence: CN)
  Receive Date: 20251016
  Receipt Date: 20251016
  Transmission Date: 20260118
  Serious: Yes (Hospitalization, Other)
  Sender: ELI LILLY AND COMPANY
  Company Number: CN-Merck Healthcare KGaA-2025051110

PATIENT
  Age: 76 Year
  Sex: Male
  Weight: 46 kg

DRUGS (3)
  1. ERBITUX [Suspect]
     Active Substance: CETUXIMAB
     Indication: Squamous cell carcinoma
     Dosage: 800 MG, UNKNOWN
     Route: 041
     Dates: start: 20250926, end: 20250926
  2. DOCETAXEL [Suspect]
     Active Substance: DOCETAXEL
     Indication: Squamous cell carcinoma
     Dosage: 80 MG, DAILY
     Route: 041
     Dates: start: 20250926, end: 20250926
  3. CISPLATIN [Suspect]
     Active Substance: CISPLATIN
     Indication: Squamous cell carcinoma
     Dosage: 80 MG, DAILY
     Route: 041
     Dates: start: 20250926, end: 20250926

REACTIONS (2)
  - Myelosuppression [Unknown]
  - Vomiting [Unknown]

NARRATIVE: CASE EVENT DATE: 20251002
